FAERS Safety Report 10438738 (Version 2)
Quarter: 2014Q3

REPORT INFORMATION
  Report Type: Spontaneous
  Country: IT (occurrence: IT)
  Receive Date: 20140908
  Receipt Date: 20140923
  Transmission Date: 20150326
  Serious: Yes (Other)
  Sender: FDA-Public Use
  Company Number: IT-US-EMD SERONO, INC.-7319122

PATIENT
  Age: 52 Year
  Sex: Female

DRUGS (1)
  1. REBIF [Suspect]
     Active Substance: INTERFERON BETA-1A
     Indication: MULTIPLE SCLEROSIS
     Route: 058

REACTIONS (6)
  - Thyroid neoplasm [Unknown]
  - Muscle contracture [Unknown]
  - Muscle spasticity [Unknown]
  - Pyrexia [Unknown]
  - Influenza [Unknown]
  - Arthralgia [Unknown]

NARRATIVE: CASE EVENT DATE: 20140904
